FAERS Safety Report 9261114 (Version 1)
Quarter: 2013Q2

REPORT INFORMATION
  Report Type: Spontaneous
  Country: GB (occurrence: GB)
  Receive Date: 20130429
  Receipt Date: 20130429
  Transmission Date: 20140414
  Serious: Yes (Hospitalization)
  Sender: FDA-Public Use
  Company Number: PHFR2013GB002366

PATIENT
  Sex: Male

DRUGS (3)
  1. CLOZARIL [Suspect]
     Indication: SCHIZOPHRENIA
     Dosage: UNK UKN, UNK
     Route: 048
     Dates: start: 20010701
  2. CLOZARIL [Suspect]
     Dosage: 125 MG, OD
     Route: 048
  3. INSULIN [Concomitant]
     Dosage: UNK UKN, UNK

REACTIONS (8)
  - Splenomegaly [Unknown]
  - Cough [Unknown]
  - Pyrexia [Not Recovered/Not Resolved]
  - Abdominal discomfort [Unknown]
  - Lower respiratory tract infection [Unknown]
  - Delirium [Recovered/Resolved]
  - Psychotic disorder [Unknown]
  - Tachycardia [Not Recovered/Not Resolved]
